FAERS Safety Report 22192126 (Version 1)
Quarter: 2023Q2

REPORT INFORMATION
  Report Type: Spontaneous
  Country: CN (occurrence: CN)
  Receive Date: 20230410
  Receipt Date: 20230410
  Transmission Date: 20230722
  Serious: Yes (Other)
  Sender: FDA-Public Use
  Company Number: CN-PFIZER INC-PV202300063535

PATIENT
  Age: 75 Year
  Sex: Male

DRUGS (2)
  1. METHYLPREDNISOLONE SODIUM SUCCINATE [Suspect]
     Active Substance: METHYLPREDNISOLONE SODIUM SUCCINATE
     Indication: Hypersensitivity pneumonitis
     Dosage: 40 MG, 2X/DAY
     Route: 041
     Dates: start: 20230201, end: 20230206
  2. MOXIFLOXACIN HYDROCHLORIDE [Suspect]
     Active Substance: MOXIFLOXACIN HYDROCHLORIDE
     Indication: Anti-infective therapy
     Dosage: 400 MG, 1X/DAY
     Route: 041
     Dates: start: 20230131, end: 20230203

REACTIONS (3)
  - Hallucination [Recovered/Resolved]
  - Delirium [Recovered/Resolved]
  - Agitation [Recovered/Resolved]

NARRATIVE: CASE EVENT DATE: 20230202
